FAERS Safety Report 11926770 (Version 1)
Quarter: 2016Q1

REPORT INFORMATION
  Report Type: Report from Study
  Country: ZA (occurrence: ZA)
  Receive Date: 20160119
  Receipt Date: 20160119
  Transmission Date: 20160526
  Serious: Yes (Death, Other)
  Sender: FDA-Public Use
  Company Number: ZA-AMGEN-ZAFSL2016003575

PATIENT
  Sex: Female

DRUGS (1)
  1. SENSIPAR [Suspect]
     Active Substance: CINACALCET HYDROCHLORIDE
     Indication: HYPERPARATHYROIDISM SECONDARY
     Dosage: 30 MG, QD
     Route: 048
     Dates: start: 20110324

REACTIONS (1)
  - Death [Fatal]
